FAERS Safety Report 5116834-4 (Version None)
Quarter: 2006Q3

REPORT INFORMATION
  Report Type: 
  Country: None (occurrence: None)
  Receive Date: 20060925
  Receipt Date: 20060912
  Transmission Date: 20061208
  Serious: Yes (Hospitalization)
  Sender: FDA-Public Use
  Company Number: T200600879

PATIENT
  Age: 29 Year
  Sex: Female

DRUGS (1)
  1. OPTIRAY (IOVERSOL)INJECTION, 300 [Suspect]
     Dosage: 100 ML, SINGLE, INTRAVENOUS
     Route: 042
     Dates: start: 20060712, end: 20060712

REACTIONS (6)
  - COUGH [None]
  - DYSPNOEA [None]
  - FACE OEDEMA [None]
  - HYPERSENSITIVITY [None]
  - HYPOTENSION [None]
  - URTICARIA [None]
